FAERS Safety Report 17878267 (Version 2)
Quarter: 2020Q3

REPORT INFORMATION
  Report Type: Report from Study
  Country: None (occurrence: US)
  Receive Date: 20200609
  Receipt Date: 20200811
  Transmission Date: 20201103
  Serious: Yes (Hospitalization)
  Sender: FDA-Public Use
  Company Number: US-ABBVIE-20K-163-3432679-00

PATIENT
  Age: 61 Year
  Sex: Female
  Weight: 49.94 kg

DRUGS (2)
  1. HUMIRA [Suspect]
     Active Substance: ADALIMUMAB
     Indication: RHEUMATOID ARTHRITIS
     Dosage: CITRATE FREE
     Route: 058
  2. LEVOTHYROXIN [Concomitant]
     Active Substance: LEVOTHYROXINE
     Indication: BASEDOW^S DISEASE

REACTIONS (4)
  - Stress cardiomyopathy [Unknown]
  - Myocardial infarction [Recovering/Resolving]
  - Hormone level abnormal [Unknown]
  - Troponin increased [Unknown]

NARRATIVE: CASE EVENT DATE: 202005
